FAERS Safety Report 6667157-3 (Version None)
Quarter: 2010Q2

REPORT INFORMATION
  Report Type: 
  Country: None (occurrence: None)
  Receive Date: 20100405
  Receipt Date: 20100326
  Transmission Date: 20101027
  Serious: Yes (Hospitalization)
  Sender: FDA-Public Use
  Company Number: US-RB-004037-10

PATIENT
  Age: 40 Year
  Sex: Male

DRUGS (2)
  1. SUBOXONE [Suspect]
     Route: 060
     Dates: start: 20090201
  2. SUBOXONE [Suspect]
     Route: 065
     Dates: start: 20090101

REACTIONS (4)
  - INSOMNIA [None]
  - LOCAL SWELLING [None]
  - OEDEMA PERIPHERAL [None]
  - SUICIDAL IDEATION [None]
